FAERS Safety Report 7248964-5 (Version None)
Quarter: 2011Q1

REPORT INFORMATION
  Report Type: 
  Country: None (occurrence: None)
  Receive Date: 20110128
  Receipt Date: 20110119
  Transmission Date: 20110831
  Serious: Yes (Hospitalization)
  Sender: FDA-Public Use
  Company Number: PHHY2011SK05204

PATIENT
  Age: 47 Year
  Sex: Female

DRUGS (4)
  1. CYCLOSPORINE [Concomitant]
     Dosage: UNK
     Dates: start: 19910101
  2. METHOTREXATE [Concomitant]
     Dosage: UNK
     Dates: start: 19910101
  3. CORTICOSTEROID [Concomitant]
     Dosage: UNK
     Dates: start: 19910101
  4. DICLOFENAC SODIUM [Suspect]
     Indication: RHEUMATOID ARTHRITIS
     Dosage: 75 MG, BID
     Dates: start: 19910101

REACTIONS (5)
  - IRON DEFICIENCY ANAEMIA [None]
  - GASTROINTESTINAL DISORDER [None]
  - COLITIS [None]
  - LARGE INTESTINAL ULCER [None]
  - INFLAMMATION [None]
